FAERS Safety Report 16189858 (Version 1)
Quarter: 2019Q2

REPORT INFORMATION
  Report Type: Spontaneous
  Country: US (occurrence: US)
  Receive Date: 20190310
  Receipt Date: 20190310
  Transmission Date: 20190711
  Serious: No
  Sender: FDA-Public Use
  Company Number: None

PATIENT
  Sex: Male

DRUGS (1)
  1. COSENTYX [Suspect]
     Active Substance: SECUKINUMAB
     Route: 058
     Dates: start: 20190220

REACTIONS (6)
  - Rhinorrhoea [None]
  - Abdominal discomfort [None]
  - Diarrhoea [None]
  - Nausea [None]
  - Headache [None]
  - Nasal congestion [None]
